FAERS Safety Report 23240958 (Version 2)
Quarter: 2024Q1

REPORT INFORMATION
  Report Type: Spontaneous
  Country: US (occurrence: US)
  Receive Date: 20231129
  Receipt Date: 20240229
  Transmission Date: 20240410
  Serious: No
  Sender: FDA-Public Use
  Company Number: US-SA-SAC20231122000257

PATIENT
  Age: 19 Year
  Sex: Female

DRUGS (1)
  1. DUPIXENT [Suspect]
     Active Substance: DUPILUMAB
     Indication: Dermatitis atopic
     Dosage: 200MG Q2W
     Route: 058

REACTIONS (9)
  - Hyperhidrosis [Unknown]
  - Pruritus [Recovering/Resolving]
  - Eczema [Unknown]
  - Incorrect dose administered [Unknown]
  - Sleep disorder due to a general medical condition [Unknown]
  - Dermatitis atopic [Unknown]
  - Skin exfoliation [Unknown]
  - Dry skin [Unknown]
  - Drug effect less than expected [Unknown]
